FAERS Safety Report 4432020-5 (Version None)
Quarter: 2004Q3

REPORT INFORMATION
  Report Type: 
  Country: None (occurrence: None)
  Receive Date: 20040818
  Receipt Date: 20040805
  Transmission Date: 20050211
  Serious: Yes (Other)
  Sender: FDA-Public Use
  Company Number: 2004053912

PATIENT
  Sex: Male
  Weight: 120.2032 kg

DRUGS (8)
  1. ACCUPRIL [Suspect]
     Indication: HYPERTENSION
     Dosage: 20 MG (20 MG, 1 IN 1 D), ORAL
     Route: 048
     Dates: start: 19960101
  2. METOPROLOL TARTRATE [Concomitant]
  3. GEMFIBROZIL [Concomitant]
  4. SPIRONOLACTONE [Concomitant]
  5. CITALOPRAM HYDROBROMIDE (CITALOPRAM HYDROBROMIDE) [Concomitant]
  6. FOLIC ACID [Concomitant]
  7. VITAMINS (VITAMINS) [Concomitant]
  8. ASPIRIN [Concomitant]

REACTIONS (5)
  - ABDOMINAL PAIN [None]
  - BLOOD PRESSURE INCREASED [None]
  - CHOLECYSTECTOMY [None]
  - DIARRHOEA [None]
  - VENTRICULAR TACHYCARDIA [None]
